FAERS Safety Report 19151737 (Version 2)
Quarter: 2022Q1

REPORT INFORMATION
  Report Type: Spontaneous
  Country: US (occurrence: US)
  Receive Date: 20210419
  Receipt Date: 20220105
  Transmission Date: 20220424
  Serious: No
  Sender: FDA-Public Use
  Company Number: US-GLENMARK PHARMACEUTICALS-2021GMK052534

PATIENT

DRUGS (1)
  1. TACROLIMUS [Suspect]
     Active Substance: TACROLIMUS
     Indication: Lichen planopilaris
     Dosage: UNK (ROUTE OF ADMINISTRATION: HAIRLINE)
     Route: 050

REACTIONS (3)
  - Drug effective for unapproved indication [Unknown]
  - Product physical consistency issue [Unknown]
  - Product container issue [Unknown]
